FAERS Safety Report 7196857-4 (Version None)
Quarter: 2010Q4

REPORT INFORMATION
  Report Type: 
  Country: None (occurrence: None)
  Receive Date: 20101223
  Receipt Date: 20101213
  Transmission Date: 20110411
  Serious: No
  Sender: FDA-Public Use
  Company Number: US-AMGEN-USASP2010001381

PATIENT

DRUGS (2)
  1. ENBREL [Suspect]
     Indication: RHEUMATOID ARTHRITIS
     Dosage: 50 MG, QWK
     Dates: start: 20071130
  2. ENBREL [Suspect]
     Dosage: 50 MG, QWK
     Dates: start: 20071130

REACTIONS (2)
  - INJECTION SITE PAIN [None]
  - SINUS HEADACHE [None]
